FAERS Safety Report 13829987 (Version 1)
Quarter: 2017Q3

REPORT INFORMATION
  Report Type: Spontaneous
  Country: US (occurrence: US)
  Receive Date: 20170803
  Receipt Date: 20170803
  Transmission Date: 20171127
  Serious: No
  Sender: FDA-Public Use
  Company Number: US-ELI_LILLY_AND_COMPANY-US201707002344

PATIENT
  Age: 66 Year
  Sex: Male

DRUGS (3)
  1. AMLODIPINE [Concomitant]
     Active Substance: AMLODIPINE BESYLATE
     Indication: BLOOD PRESSURE ABNORMAL
     Dosage: 2.5 MG, UNK
  2. NEXIUM [Concomitant]
     Active Substance: ESOMEPRAZOLE MAGNESIUM
     Indication: DYSPEPSIA
  3. CIALIS [Suspect]
     Active Substance: TADALAFIL
     Indication: BENIGN PROSTATIC HYPERPLASIA
     Dosage: 1 DF, DAILY
     Route: 048
     Dates: start: 2016

REACTIONS (2)
  - Benign prostatic hyperplasia [Not Recovered/Not Resolved]
  - Fatigue [Not Recovered/Not Resolved]
